FAERS Safety Report 11198372 (Version 1)
Quarter: 2015Q2

REPORT INFORMATION
  Report Type: Spontaneous
  Country: US (occurrence: US)
  Receive Date: 20150618
  Receipt Date: 20150618
  Transmission Date: 20150821
  Serious: No
  Sender: FDA-Public Use
  Company Number: US-009507513-1506USA004146

PATIENT
  Age: 23 Year
  Sex: Male

DRUGS (1)
  1. FINASTERIDE. [Suspect]
     Active Substance: FINASTERIDE
     Dosage: UNK
     Route: 048
     Dates: start: 201504

REACTIONS (3)
  - Loss of libido [Unknown]
  - Sexual dysfunction [Unknown]
  - Emotional disorder [Unknown]

NARRATIVE: CASE EVENT DATE: 201504
